FAERS Safety Report 6612780-5 (Version None)
Quarter: 2010Q1

REPORT INFORMATION
  Report Type: 
  Country: None (occurrence: None)
  Receive Date: 20100223
  Receipt Date: 20100209
  Transmission Date: 20100710
  Serious: No
  Sender: FDA-Public Use
  Company Number: 2010AP000181

PATIENT
  Sex: 0

DRUGS (3)
  1. LAMOTRIGINE        (LAMOTRIGONE) [Suspect]
     Dosage: 400 MG; TRPL; QD
     Route: 064
  2. FOLIC ACID [Suspect]
     Dosage: 0.5 MG;TRPL;QD
     Route: 064
  3. VALPROIC ACID [Suspect]
     Dosage: 600 MG; TRPL
     Route: 064

REACTIONS (2)
  - LIMB MALFORMATION [None]
  - MATERNAL DRUGS AFFECTING FOETUS [None]
